FAERS Safety Report 15172200 (Version 2)
Quarter: 2018Q3

REPORT INFORMATION
  Report Type: Spontaneous
  Country: GH (occurrence: GH)
  Receive Date: 20180720
  Receipt Date: 20180723
  Transmission Date: 20181010
  Serious: Yes (Other)
  Sender: FDA-Public Use
  Company Number: GH-PFIZER INC-2018290343

PATIENT
  Sex: Female
  Weight: 31 kg

DRUGS (1)
  1. SALAZOPYRIN [Suspect]
     Active Substance: SULFASALAZINE
     Dosage: 250 MG, 4X/DAY

REACTIONS (1)
  - Mouth haemorrhage [Not Recovered/Not Resolved]
